FAERS Safety Report 14449568 (Version 1)
Quarter: 2018Q1

REPORT INFORMATION
  Report Type: Spontaneous
  Country: US (occurrence: US)
  Receive Date: 20180128
  Receipt Date: 20180128
  Transmission Date: 20180509
  Serious: No
  Sender: FDA-Public Use
  Company Number: US-TEVA-766464ACC

PATIENT
  Sex: Female

DRUGS (1)
  1. TELMISARTAN. [Suspect]
     Active Substance: TELMISARTAN
     Indication: HYPERTENSION

REACTIONS (3)
  - Dizziness [Unknown]
  - Drug ineffective [Unknown]
  - Hypotension [Unknown]

NARRATIVE: CASE EVENT DATE: 201703
